FAERS Safety Report 20785039 (Version 1)
Quarter: 2022Q2

REPORT INFORMATION
  Report Type: Spontaneous
  Country: US (occurrence: None)
  Receive Date: 20220503
  Receipt Date: 20220503
  Transmission Date: 20220721
  Serious: Yes (Life-Threatening, Hospitalization)
  Sender: FDA-Public Use
  Company Number: None

PATIENT
  Age: 58 Year
  Sex: Male
  Weight: 70.7 kg

DRUGS (1)
  1. WARFARIN [Suspect]
     Active Substance: WARFARIN
     Dosage: FREQUENCY : DAILY;?
     Route: 048

REACTIONS (6)
  - Fall [None]
  - Unresponsive to stimuli [None]
  - Incoherent [None]
  - International normalised ratio increased [None]
  - Subarachnoid haemorrhage [None]
  - Contusion [None]

NARRATIVE: CASE EVENT DATE: 20220205
